FAERS Safety Report 17015651 (Version 3)
Quarter: 2020Q1

REPORT INFORMATION
  Report Type: Spontaneous
  Country: US (occurrence: US)
  Receive Date: 20191111
  Receipt Date: 20200107
  Transmission Date: 20200409
  Serious: Yes (Other)
  Sender: FDA-Public Use
  Company Number: US-PFIZER INC-2019482492

PATIENT
  Age: 75 Year
  Sex: Female
  Weight: 79.82 kg

DRUGS (2)
  1. LETROZOLE. [Concomitant]
     Active Substance: LETROZOLE
     Dosage: 2.5 MG, UNK
     Dates: start: 20180430
  2. IBRANCE [Suspect]
     Active Substance: PALBOCICLIB
     Indication: BREAST CANCER FEMALE
     Dosage: 125 MG, FOR 21 DAYS REST FOR 7 DAYS
     Dates: start: 20180430

REACTIONS (9)
  - Arthritis [Not Recovered/Not Resolved]
  - Cancer pain [Unknown]
  - Mobility decreased [Not Recovered/Not Resolved]
  - Neuropathy peripheral [Recovered/Resolved]
  - Neoplasm progression [Not Recovered/Not Resolved]
  - Bone pain [Not Recovered/Not Resolved]
  - Arthropathy [Not Recovered/Not Resolved]
  - Sciatica [Not Recovered/Not Resolved]
  - Arthralgia [Not Recovered/Not Resolved]
